FAERS Safety Report 4960551-8 (Version None)
Quarter: 2006Q1

REPORT INFORMATION
  Report Type: 
  Country: None (occurrence: None)
  Receive Date: 20060329
  Receipt Date: 20060314
  Transmission Date: 20060701
  Serious: Yes (Other)
  Sender: FDA-Public Use
  Company Number: PHHO2006JP03719

PATIENT
  Age: 74 Year
  Sex: Female
  Weight: 54.0234 kg

DRUGS (1)
  1. VISUDYNE [Suspect]
     Indication: MACULAR DEGENERATION
     Dosage: 6 MG/M^2 ONCE IV
     Route: 042
     Dates: start: 20050113, end: 20050113

REACTIONS (3)
  - CEREBRAL INFARCTION [None]
  - CEREBRAL THROMBOSIS [None]
  - TRANSIENT ISCHAEMIC ATTACK [None]
